FAERS Safety Report 9847663 (Version 1)
Quarter: 2014Q1

REPORT INFORMATION
  Report Type: Report from Study
  Country: GB (occurrence: GB)
  Receive Date: 20140128
  Receipt Date: 20140128
  Transmission Date: 20141002
  Serious: Yes (Death, Hospitalization)
  Sender: FDA-Public Use
  Company Number: GB-ROCHE-1336763

PATIENT
  Age: 63 Year
  Sex: Female
  Weight: 95 kg

DRUGS (2)
  1. TOCILIZUMAB [Suspect]
     Indication: RHEUMATOID ARTHRITIS
     Dosage: DATE OF LAST DOSE PRIOR TO SAE: 15/FEB/2013
     Route: 065
     Dates: start: 20101119
  2. METHOTREXATE [Concomitant]

REACTIONS (6)
  - Death [Fatal]
  - Septic shock [Unknown]
  - Cholecystitis infective [Unknown]
  - Gastroenteritis norovirus [Unknown]
  - Multi-organ failure [Unknown]
  - Empyema [Unknown]
